FAERS Safety Report 22215263 (Version 1)
Quarter: 2023Q2

REPORT INFORMATION
  Report Type: Spontaneous
  Country: US (occurrence: US)
  Receive Date: 20230415
  Receipt Date: 20230415
  Transmission Date: 20230721
  Serious: No
  Sender: FDA-Public Use
  Company Number: US-JNJFOC-20190806022

PATIENT
  Age: 74 Year
  Sex: Male
  Weight: 77.180 kg

DRUGS (1)
  1. IMODIUM MULTI-SYMPTOM RELIEF [Suspect]
     Active Substance: DIMETHICONE\LOPERAMIDE HYDROCHLORIDE
     Indication: Diarrhoea
     Dosage: 2 CAPLETS FOR FIRST DOSE. 1 CAPLET DAILY FOR 5 DAYS 2 CAPLETS FOR FIRST DOSE. 1 CAPLET DAILY FOR 5 D
     Route: 048
     Dates: start: 20190724

REACTIONS (1)
  - Constipation [Not Recovered/Not Resolved]
